FAERS Safety Report 9712405 (Version 1)
Quarter: 2013Q4

REPORT INFORMATION
  Report Type: Spontaneous
  Country: CA (occurrence: CA)
  Receive Date: 20131126
  Receipt Date: 20131126
  Transmission Date: 20140711
  Serious: Yes (Other)
  Sender: FDA-Public Use
  Company Number: CA-PFIZER INC-2013329700

PATIENT
  Age: 56 Year
  Sex: Female

DRUGS (6)
  1. CHAMPIX [Suspect]
     Dosage: UNK
     Dates: start: 201201, end: 201204
  2. FERROUS GLUCONATE [Concomitant]
     Dosage: 900 MG, DAILY
     Route: 048
  3. ASA [Concomitant]
     Dosage: 81 MG, DAILY
     Route: 048
  4. ATORVASTATIN [Concomitant]
     Dosage: 20 MG, DAILY
     Route: 048
  5. ENALAPRIL [Concomitant]
     Dosage: 15 MG, DAILY
     Route: 048
  6. CARDIZEM CD [Concomitant]
     Dosage: UNK

REACTIONS (1)
  - Tubulointerstitial nephritis [Unknown]
